FAERS Safety Report 25151697 (Version 1)
Quarter: 2025Q2

REPORT INFORMATION
  Report Type: Spontaneous
  Country: US (occurrence: None)
  Receive Date: 20250402
  Receipt Date: 20250402
  Transmission Date: 20250717
  Serious: Yes (Hospitalization)
  Sender: FDA-CTU
  Company Number: None

PATIENT
  Age: 54 Year
  Sex: Male

DRUGS (5)
  1. ELFABRIO [Suspect]
     Active Substance: PEGUNIGALSIDASE ALFA-IWXJ
     Indication: Fabry^s disease
     Route: 042
     Dates: start: 20240711
  2. ENVARSUS XR [Concomitant]
     Active Substance: TACROLIMUS
  3. EPINEPHRINE AUTO-INJ [Concomitant]
  4. SODIUM CHLOR (500ML/BAG) [Concomitant]
  5. MYCOPHENOLIC ACID [Concomitant]
     Active Substance: MYCOPHENOLIC ACID

REACTIONS (1)
  - Dizziness [None]

NARRATIVE: CASE EVENT DATE: 20250315
